FAERS Safety Report 5752532-1 (Version None)
Quarter: 2008Q2

REPORT INFORMATION
  Report Type: 
  Country: None (occurrence: None)
  Receive Date: 20080529
  Receipt Date: 20080520
  Transmission Date: 20081010
  Serious: Yes (Hospitalization)
  Sender: FDA-Public Use
  Company Number: PHHO2008US05777

PATIENT
  Age: 57 Year
  Sex: Female

DRUGS (20)
  1. TEGRETOL [Suspect]
  2. CARBATROL [Suspect]
  3. KLONOPIN [Suspect]
  4. LAMICTAL [Suspect]
  5. ZOLOFT [Suspect]
  6. ZANTAC [Suspect]
  7. COLACE [Suspect]
  8. MELATONIN [Suspect]
  9. AMITRIPTYLINE HCL [Concomitant]
  10. IMITREX [Concomitant]
  11. TETRACYCLINE [Concomitant]
  12. PROPRANOLOL [Concomitant]
  13. TYLENOL [Concomitant]
  14. GLUCOSAMINE W/CHONDROITIN [Concomitant]
  15. MULTI-VITAMIN [Concomitant]
  16. VITAMIN E [Concomitant]
  17. PEPCID [Concomitant]
  18. ADVIL [Concomitant]
  19. LIPITOR [Concomitant]
  20. FLUOXETINE HCL [Concomitant]

REACTIONS (5)
  - ACCIDENTAL EXPOSURE [None]
  - CONFUSIONAL STATE [None]
  - INCONTINENCE [None]
  - LETHARGY [None]
  - UNRESPONSIVE TO STIMULI [None]
